FAERS Safety Report 18553054 (Version 1)
Quarter: 2020Q4

REPORT INFORMATION
  Report Type: Report from Study
  Country: DE (occurrence: DE)
  Receive Date: 20201127
  Receipt Date: 20201127
  Transmission Date: 20210114
  Serious: Yes (Hospitalization)
  Sender: FDA-Public Use
  Company Number: DE-ACCORD-209238

PATIENT
  Age: 82 Year
  Sex: Female
  Weight: 65 kg

DRUGS (3)
  1. APIXABAN [Suspect]
     Active Substance: APIXABAN
     Indication: ATRIAL FIBRILLATION
     Route: 048
  2. SIMVASTATIN. [Concomitant]
     Active Substance: SIMVASTATIN
     Indication: CORONARY ARTERY DISEASE
     Route: 048
  3. VESIKUR [Concomitant]
     Active Substance: SOLIFENACIN SUCCINATE
     Indication: HYPERTENSION
     Route: 048

REACTIONS (5)
  - Cerebral haemorrhage [Not Recovered/Not Resolved]
  - Hemiparesis [Not Recovered/Not Resolved]
  - Intraventricular haemorrhage [Not Recovered/Not Resolved]
  - Visual impairment [Not Recovered/Not Resolved]
  - Dizziness [Not Recovered/Not Resolved]

NARRATIVE: CASE EVENT DATE: 20201004
